FAERS Safety Report 6965181-4 (Version None)
Quarter: 2010Q3

REPORT INFORMATION
  Report Type: 
  Country: None (occurrence: None)
  Receive Date: 20100903
  Receipt Date: 20100824
  Transmission Date: 20110219
  Serious: Yes (Hospitalization, Other)
  Sender: FDA-Public Use
  Company Number: US-PFIZER INC-2009246502

PATIENT
  Sex: Female
  Weight: 62.59 kg

DRUGS (9)
  1. ZOLOFT [Suspect]
     Indication: DEPRESSION
     Dosage: 50 MG, UNK
     Route: 048
     Dates: start: 20050713
  2. MOTRIN IB [Suspect]
     Indication: ANALGESIC THERAPY
     Dosage: UNK
     Route: 048
     Dates: start: 20050713
  3. MOTRIN IB [Suspect]
     Indication: MIGRAINE
  4. MOTRIN IB [Suspect]
     Indication: HEADACHE
  5. ACETAMINOPHEN [Suspect]
     Indication: ANALGESIC THERAPY
     Dosage: 2 DF, 1 IN 2 HOUR
     Route: 048
     Dates: start: 20050714
  6. VALSARTAN [Concomitant]
     Indication: HYPERTENSION
     Dosage: 160 MG, 1X/DAY
  7. ATENOLOL [Concomitant]
     Indication: HYPERTENSION
     Dosage: 50 MG, 1 IN 1 HOUR OF SLEEP
  8. ATENOLOL [Concomitant]
     Indication: PRODUCT USED FOR UNKNOWN INDICATION
  9. BUTALBITAL ACETAMINOPHEN AND CAFFEINE [Concomitant]
     Indication: HEADACHE
     Dosage: UNK

REACTIONS (1)
  - STEVENS-JOHNSON SYNDROME [None]
